FAERS Safety Report 7965607-3 (Version None)
Quarter: 2011Q4

REPORT INFORMATION
  Report Type: 
  Country: None (occurrence: None)
  Receive Date: 20111208
  Receipt Date: 20111105
  Transmission Date: 20120403
  Serious: Yes (Hospitalization)
  Sender: FDA-Public Use
  Company Number: US-AMGEN-USASP2011064468

PATIENT
  Age: 62 Year
  Sex: Female
  Weight: 88.89 kg

DRUGS (27)
  1. NYSTATIN [Concomitant]
     Route: 061
  2. LANTUS [Concomitant]
     Dosage: 25 IU, QD
  3. LANTUS [Concomitant]
     Dosage: 10 IU, UNK
  4. LOPID [Concomitant]
     Dosage: 600 MG, BID
  5. FERROUS GLUCONATE [Concomitant]
     Dosage: 325 MG, BID
  6. METOPROLOL TARTRATE [Concomitant]
     Dosage: 50 MG, Q8H
  7. LASIX [Concomitant]
     Dosage: 20 MG, QD
  8. TRAZODONE HCL [Concomitant]
     Indication: INSOMNIA
     Dosage: 25 MG, PRN
  9. NEURONTIN [Concomitant]
     Dosage: 100 MG, TID
  10. ACIDOPHILUS [Concomitant]
     Dosage: UNK UNK, BID
  11. FLOMAX [Concomitant]
     Dosage: 0.4 MG, QD
  12. CALCIUM WITH VITAMIN D             /00944201/ [Concomitant]
     Dosage: UNK UNK, BID
  13. AMLODIPINE [Concomitant]
     Dosage: 10 MG, QD
  14. PROTONIX [Concomitant]
     Dosage: 40 MG, BID
  15. VITAMIN D [Concomitant]
     Dosage: 2000 IU, QD
  16. HYDRALAZINE HCL [Concomitant]
     Dosage: 25 MG, BID
  17. METAMUCIL                          /00029101/ [Concomitant]
     Dosage: UNK
  18. HUMULIN R [Concomitant]
  19. ATARAX [Concomitant]
     Indication: PRURITUS
     Dosage: 25 MG, Q6H
  20. PROCRIT [Suspect]
     Dosage: 10000 IU, Q12H
     Route: 058
     Dates: start: 20111202
  21. IMDUR [Concomitant]
     Dosage: 30 MG, QD
  22. PREDNISONE TAB [Concomitant]
     Dosage: 10 MG, QD
  23. ATIVAN [Concomitant]
     Indication: ANXIETY
     Dosage: 0.25 MG, PRN
  24. PROCRIT [Suspect]
     Indication: RENAL FAILURE CHRONIC
     Dosage: 10000 IU, QWK
     Dates: end: 20111101
  25. SYNTHROID [Concomitant]
     Dosage: 100 MUG, QD
  26. ALLOPURINOL [Concomitant]
     Dosage: 200 MG, QD
  27. VICODIN [Concomitant]
     Indication: PAIN
     Dosage: UNK UNK, PRN

REACTIONS (1)
  - RENAL FAILURE ACUTE [None]
